FAERS Safety Report 8136944-7 (Version None)
Quarter: 2012Q1

REPORT INFORMATION
  Report Type: 
  Country: None (occurrence: None)
  Receive Date: 20120214
  Receipt Date: 20120207
  Transmission Date: 20120608
  Serious: Yes (Life-Threatening, Hospitalization)
  Sender: FDA-Public Use
  Company Number: US-MERCK-1202USA01407

PATIENT
  Age: 64 Year
  Sex: Female
  Weight: 80 kg

DRUGS (15)
  1. NAPROXEN SODIUM [Concomitant]
     Route: 065
  2. VITAMIN D (UNSPECIFIED) [Concomitant]
     Route: 065
  3. CALCIUM CARBONATE [Concomitant]
     Route: 065
  4. LIPITOR [Concomitant]
     Route: 065
  5. METFORMIN [Concomitant]
     Route: 065
  6. ESOMEPRAZOLE MAGNESIUM [Concomitant]
     Route: 065
  7. HYDROCHLOROTHIAZIDE [Concomitant]
     Route: 065
  8. AMLODIPINE [Concomitant]
     Route: 065
  9. CETIRIZINE HYDROCHLORIDE [Concomitant]
     Route: 065
  10. LISINOPRIL [Concomitant]
     Route: 048
  11. GLIPIZIDE [Concomitant]
     Route: 065
  12. VOLTAREN [Concomitant]
     Route: 065
  13. JANUVIA [Suspect]
     Indication: TYPE 2 DIABETES MELLITUS
     Route: 048
     Dates: start: 20110907, end: 20111029
  14. GLIPIZIDE [Concomitant]
     Route: 065
  15. GLIMEPIRIDE [Concomitant]
     Route: 065

REACTIONS (2)
  - GASTROOESOPHAGEAL REFLUX DISEASE [None]
  - RENAL FAILURE [None]
